FAERS Safety Report 13008803 (Version 2)
Quarter: 2017Q1

REPORT INFORMATION
  Report Type: Spontaneous
  Country: US (occurrence: US)
  Receive Date: 20161208
  Receipt Date: 20170123
  Transmission Date: 20170428
  Serious: Yes (Other)
  Sender: FDA-Public Use
  Company Number: US-RECKITT BENCKISER HEALTHCARE INT LIMITED-RB-93618-2016

PATIENT
  Age: 45 Year
  Sex: Female

DRUGS (2)
  1. UNSPECIFIED DEXTROMETHORPHAN HYDROBROMIDE [Suspect]
     Active Substance: DEXTROMETHORPHAN HYDROBROMIDE
     Dosage: 800 MG, SINGLE, USED AS MUCH AS 800 MG IN A SINGLE DOSAGE, OFTEN MORE THAN ONCE A DAY
     Route: 065
  2. UNSPECIFIED DEXTROMETHORPHAN HYDROBROMIDE [Suspect]
     Active Substance: DEXTROMETHORPHAN HYDROBROMIDE
     Indication: DRUG ABUSE
     Dosage: STARTED USING 120 TO 180 MG A DAY CONTINUOUSLY
     Route: 065

REACTIONS (17)
  - Poisoning [Recovered/Resolved]
  - Disturbance in social behaviour [Unknown]
  - Drug abuse [Recovered/Resolved]
  - Hyperventilation [Unknown]
  - Fatigue [Unknown]
  - Intentional overdose [Recovered/Resolved]
  - Psychotic disorder [Unknown]
  - Depression [Unknown]
  - Intentional self-injury [Unknown]
  - Tachycardia [Unknown]
  - Drug dependence [Recovered/Resolved]
  - Hallucinations, mixed [Unknown]
  - Drug tolerance [Recovered/Resolved]
  - Withdrawal syndrome [Unknown]
  - Anxiety [Unknown]
  - Unevaluable event [Unknown]
  - Hyperhidrosis [Unknown]
